FAERS Safety Report 4988990-X (Version None)
Quarter: 2006Q1

REPORT INFORMATION
  Report Type: 
  Country: None (occurrence: None)
  Receive Date: 20060314
  Receipt Date: 20051206
  Transmission Date: 20060701
  Serious: Yes (Other)
  Sender: FDA-Public Use
  Company Number: 200513373BCC

PATIENT
  Age: 56 Year
  Sex: Male
  Weight: 88.4514 kg

DRUGS (3)
  1. ALEVE [Suspect]
     Indication: BACK PAIN
     Dosage: 220 MG, ONCE, ORAL
     Route: 048
     Dates: start: 20050818
  2. GLUCOVANCE [Concomitant]
  3. HOODIA [Concomitant]

REACTIONS (12)
  - ANAPHYLACTIC REACTION [None]
  - ANXIETY [None]
  - COUGH [None]
  - DIZZINESS [None]
  - HYPOAESTHESIA ORAL [None]
  - JOINT SWELLING [None]
  - RASH GENERALISED [None]
  - SWELLING FACE [None]
  - SWOLLEN TONGUE [None]
  - TACHYCARDIA [None]
  - THROAT TIGHTNESS [None]
  - URTICARIA [None]
